FAERS Safety Report 21904574 (Version 3)
Quarter: 2023Q1

REPORT INFORMATION
  Report Type: Report from Study
  Country: IT (occurrence: IT)
  Receive Date: 20230124
  Receipt Date: 20230209
  Transmission Date: 20230417
  Serious: Yes (Other)
  Sender: FDA-Public Use
  Company Number: None

PATIENT
  Age: 51 Year
  Sex: Female

DRUGS (2)
  1. MEPIVACAINE HYDROCHLORIDE [Suspect]
     Active Substance: MEPIVACAINE HYDROCHLORIDE
     Indication: Product used for unknown indication
     Route: 004
     Dates: start: 20220704, end: 20220704
  2. NEBIVOLOLO CLORIDRATO [Concomitant]
     Indication: Product used for unknown indication

REACTIONS (1)
  - Choking [Recovering/Resolving]

NARRATIVE: CASE EVENT DATE: 20220704
